FAERS Safety Report 25876279 (Version 1)
Quarter: 2025Q4

REPORT INFORMATION
  Report Type: Spontaneous
  Country: BR (occurrence: BR)
  Receive Date: 20251003
  Receipt Date: 20251003
  Transmission Date: 20260117
  Serious: Yes (Other)
  Sender: ROCHE
  Company Number: BR-BoehringerIngelheim-2025-BI-097441

PATIENT
  Age: 53 Year
  Sex: Male

DRUGS (1)
  1. ALTEPLASE [Suspect]
     Active Substance: ALTEPLASE
     Indication: Thrombolysis
     Dosage: 100 MG OVER 2 HOURS
     Route: 042

REACTIONS (4)
  - Pulmonary embolism [Recovered/Resolved]
  - Cardio-respiratory arrest [Unknown]
  - Drug ineffective [Unknown]
  - Pulmonary artery occlusion [Recovered/Resolved]
